FAERS Safety Report 6133103-4 (Version None)
Quarter: 2009Q1

REPORT INFORMATION
  Report Type: 
  Country: None (occurrence: None)
  Receive Date: 20090326
  Receipt Date: 20090323
  Transmission Date: 20090719
  Serious: Yes (Hospitalization)
  Sender: FDA-Public Use
  Company Number: US-BIOGENIDEC-2009BI004890

PATIENT
  Age: 25 Year
  Sex: Female
  Weight: 68 kg

DRUGS (10)
  1. TYSABRI [Suspect]
     Indication: CROHN'S DISEASE
     Route: 042
     Dates: start: 20081112, end: 20090109
  2. ADVAIR DISKUS 100/50 [Concomitant]
     Indication: DRUG USE FOR UNKNOWN INDICATION
  3. ALBUTEROL [Concomitant]
     Indication: DRUG USE FOR UNKNOWN INDICATION
  4. NEXIUM [Concomitant]
     Indication: DRUG USE FOR UNKNOWN INDICATION
  5. REGLAN [Concomitant]
     Indication: DRUG USE FOR UNKNOWN INDICATION
  6. SINGULAIR [Concomitant]
     Indication: DRUG USE FOR UNKNOWN INDICATION
  7. YASMIN [Concomitant]
     Indication: DRUG USE FOR UNKNOWN INDICATION
  8. ZYRTEC [Concomitant]
     Indication: DRUG USE FOR UNKNOWN INDICATION
  9. TYLENOL [Concomitant]
     Indication: DRUG USE FOR UNKNOWN INDICATION
  10. OXYCODONE HCL [Concomitant]
     Indication: DRUG USE FOR UNKNOWN INDICATION

REACTIONS (6)
  - ABDOMINAL PAIN [None]
  - CHEST DISCOMFORT [None]
  - DRUG INEFFECTIVE [None]
  - HEADACHE [None]
  - PANCREATITIS [None]
  - SINUSITIS [None]
